FAERS Safety Report 8859785 (Version 1)
Quarter: 2012Q4

REPORT INFORMATION
  Report Type: 
  Country: US (occurrence: US)
  Receive Date: 20121025
  Receipt Date: 20121025
  Transmission Date: 20130627
  Serious: No
  Sender: FDA-Public Use
  Company Number: US-ABBOTT-12P-163-0977935-00

PATIENT
  Age: 31 None
  Sex: Female
  Weight: 67.19 kg

DRUGS (1)
  1. LUPRON DEPOT [Suspect]
     Indication: PRODUCT USED FOR UNKNOWN INDICATION
     Route: 030
     Dates: start: 20120730

REACTIONS (2)
  - Unevaluable event [Not Recovered/Not Resolved]
  - Menstrual disorder [Not Recovered/Not Resolved]
